FAERS Safety Report 10764893 (Version 1)
Quarter: 2015Q1

REPORT INFORMATION
  Report Type: Spontaneous
  Country: FR (occurrence: FR)
  Receive Date: 20150205
  Receipt Date: 20150205
  Transmission Date: 20150721
  Serious: Yes (Other)
  Sender: FDA-Public Use
  Company Number: FR-CIPLA LTD.-2015FR00853

PATIENT

DRUGS (4)
  1. GEMCITABINE [Suspect]
     Active Substance: GEMCITABINE\GEMCITABINE HYDROCHLORIDE
     Indication: PANCREATIC CARCINOMA METASTATIC
     Dosage: REPEATED WEEKLY FOR 3 WEEKS
     Route: 042
  2. CYL-02 [Suspect]
     Active Substance: INVESTIGATIONAL PRODUCT
     Indication: PANCREATIC CARCINOMA METASTATIC
     Dosage: 125 MICROGRAM OF INTRATUMORAL INJECTION
     Route: 036
  3. CYL-02 [Suspect]
     Active Substance: INVESTIGATIONAL PRODUCT
     Dosage: 250 MICRO GRAM OF INTRATUMORAL INJECTION
     Route: 036
  4. CYL-02 [Suspect]
     Active Substance: INVESTIGATIONAL PRODUCT
     Dosage: 500 MICROGRAM OF INTRATUMORAL INJECTION
     Route: 036

REACTIONS (1)
  - Palmar-plantar erythrodysaesthesia syndrome [Unknown]
